FAERS Safety Report 4427954-1 (Version None)
Quarter: 2004Q3

REPORT INFORMATION
  Report Type: 
  Country: None (occurrence: None)
  Receive Date: 20040817
  Receipt Date: 20040813
  Transmission Date: 20050211
  Serious: Yes (Death, Life-Threatening, Hospitalization, Other)
  Sender: FDA-Public Use
  Company Number: PHBS2004CH10660

PATIENT
  Age: 57 Year
  Sex: Female

DRUGS (6)
  1. ZOMETA [Suspect]
     Indication: HYPERCALCAEMIA OF MALIGNANCY
     Dosage: 4 MG, ONCE/SINGLE
     Dates: start: 20040420, end: 20040420
  2. ZOMETA [Suspect]
     Dosage: 4 MG, QD
     Dates: start: 20040422, end: 20040425
  3. LASIX [Suspect]
     Indication: OEDEMA
     Dosage: 40 MG/D
     Route: 042
     Dates: start: 20040420, end: 20040423
  4. METFORMIN HCL [Suspect]
     Indication: DIABETES MELLITUS NON-INSULIN-DEPENDENT
     Dosage: 850 MG/D
     Dates: start: 20040419, end: 20040425
  5. ATACAND [Suspect]
     Indication: HYPERTENSION
     Dosage: 8 MG/D
     Dates: start: 20040419, end: 20040425
  6. INSULIN [Suspect]
     Indication: DIABETES MELLITUS NON-INSULIN-DEPENDENT
     Dosage: 24 IU/D
     Route: 058
     Dates: start: 20040419, end: 20040426

REACTIONS (9)
  - ACCIDENTAL OVERDOSE [None]
  - BLOOD CREATININE INCREASED [None]
  - CIRCULATORY COLLAPSE [None]
  - CORONARY ARTERY DISEASE [None]
  - MALIGNANT NEOPLASM PROGRESSION [None]
  - OEDEMA [None]
  - OLIGURIA [None]
  - RENAL FAILURE ACUTE [None]
  - ULCER HAEMORRHAGE [None]
